FAERS Safety Report 4676418-9 (Version None)
Quarter: 2005Q2

REPORT INFORMATION
  Report Type: 
  Country: None (occurrence: None)
  Receive Date: 20050527
  Receipt Date: 20050519
  Transmission Date: 20051028
  Serious: Yes (Other)
  Sender: FDA-Public Use
  Company Number: JP-MERCK-0505USA02768

PATIENT
  Age: 86 Year
  Sex: Male

DRUGS (1)
  1. TRUSOPT [Suspect]
     Indication: INTRAOCULAR PRESSURE INCREASED
     Route: 047
     Dates: start: 20050519, end: 20050519

REACTIONS (1)
  - INTRAOCULAR PRESSURE INCREASED [None]
